FAERS Safety Report 6179753-0 (Version None)
Quarter: 2009Q2

REPORT INFORMATION
  Report Type: 
  Country: None (occurrence: None)
  Receive Date: 20090501
  Receipt Date: 20090501
  Transmission Date: 20091009
  Serious: Yes (Other)
  Sender: FDA-Public Use
  Company Number: None

PATIENT
  Age: 18 Month
  Sex: Female
  Weight: 8.6183 kg

DRUGS (2)
  1. ZYRTEC [Suspect]
     Indication: RHINITIS ALLERGIC
     Dosage: 5 ML PO QDAILY
     Route: 048
     Dates: start: 20090330
  2. SINGULAIR [Concomitant]

REACTIONS (1)
  - VOMITING [None]
